FAERS Safety Report 4436445-3 (Version None)
Quarter: 2004Q3

REPORT INFORMATION
  Report Type: 
  Country: None (occurrence: None)
  Receive Date: 20040830
  Receipt Date: 20040514
  Transmission Date: 20050211
  Serious: No
  Sender: FDA-Public Use
  Company Number: US-BRISTOL-MYERS SQUIBB COMPANY-12587424

PATIENT
  Age: 16 Year
  Sex: Male
  Weight: 63 kg

DRUGS (2)
  1. ABILIFY [Suspect]
     Indication: SCHIZOPHRENIA
     Route: 048
     Dates: start: 20040201
  2. HALDOL [Suspect]
     Indication: SCHIZOPHRENIA

REACTIONS (1)
  - DRUG INEFFECTIVE [None]
